FAERS Safety Report 10166883 (Version 1)
Quarter: 2014Q2

REPORT INFORMATION
  Report Type: Spontaneous
  Country: IT (occurrence: None)
  Receive Date: 20140508
  Receipt Date: 20140508
  Transmission Date: 20141212
  Serious: Yes (Hospitalization)
  Sender: FDA-Public Use
  Company Number: AUR-APL-2014-05186

PATIENT
  Age: 50 Year
  Sex: Male

DRUGS (4)
  1. FLUCONAZOLE [Suspect]
     Indication: ONYCHOMYCOSIS
     Route: 048
     Dates: start: 20140216, end: 20140301
  2. ALAPRIL (ENALAPRIL MALEATE) [Concomitant]
  3. CARDIOASPIRIN (ACETYLSALICYLIC ACID) [Concomitant]
  4. OMEPRAZEN (OMEPRAZOLE) [Concomitant]

REACTIONS (8)
  - Rash generalised [None]
  - Eye pruritus [None]
  - Erythema [None]
  - Urticaria [None]
  - Pruritus [None]
  - Oral mucosa erosion [None]
  - Oral mucosal erythema [None]
  - Erythema [None]
